FAERS Safety Report 8913854 (Version 2)
Quarter: 2012Q4

REPORT INFORMATION
  Report Type: 
  Country: US (occurrence: US)
  Receive Date: 20121116
  Receipt Date: 20121213
  Transmission Date: 20130627
  Serious: Yes (Hospitalization)
  Sender: FDA-Public Use
  Company Number: US-BIOGENIDEC-2012BI052983

PATIENT
  Age: 45 Year
  Sex: Female

DRUGS (13)
  1. TYSABRI [Suspect]
     Indication: MULTIPLE SCLEROSIS
     Route: 042
     Dates: start: 20120509
  2. AVONEX [Concomitant]
     Indication: MULTIPLE SCLEROSIS
     Route: 030
  3. SYNTHROID [Concomitant]
  4. NEURONTIN [Concomitant]
  5. CELEXA [Concomitant]
  6. CELEXA [Concomitant]
  7. ADDERALL [Concomitant]
  8. XANAX [Concomitant]
  9. MS CONTIN [Concomitant]
  10. PERCOCET [Concomitant]
  11. TEGRETOL [Concomitant]
  12. SENOKOT [Concomitant]
  13. FEMHRT [Concomitant]

REACTIONS (5)
  - Spinal fracture [Recovered/Resolved]
  - Ankle fracture [Recovered/Resolved]
  - Lower limb fracture [Recovered/Resolved]
  - Fall [Recovered/Resolved]
  - Loss of consciousness [Recovered/Resolved]
